FAERS Safety Report 12705928 (Version 1)
Quarter: 2016Q3

REPORT INFORMATION
  Report Type: Spontaneous
  Country: US (occurrence: US)
  Receive Date: 20160901
  Receipt Date: 20160901
  Transmission Date: 20161109
  Serious: No
  Sender: FDA-Public Use
  Company Number: US-DRREDDYS-USA/USA/16/0080839

PATIENT
  Sex: Female
  Weight: 61.2 kg

DRUGS (2)
  1. SERNIVO [Suspect]
     Active Substance: BETAMETHASONE DIPROPIONATE
     Indication: ECZEMA
     Route: 061
     Dates: start: 20160616, end: 20160617
  2. ZYRTEC [Concomitant]
     Active Substance: CETIRIZINE HYDROCHLORIDE
     Indication: PRODUCT USED FOR UNKNOWN INDICATION
     Dosage: 3 MONTHS AGO
     Route: 065

REACTIONS (3)
  - No adverse event [Unknown]
  - Product physical issue [Unknown]
  - Wrong technique in product usage process [Unknown]
